FAERS Safety Report 19058523 (Version 1)
Quarter: 2021Q1

REPORT INFORMATION
  Report Type: Spontaneous
  Country: US (occurrence: US)
  Receive Date: 20210325
  Receipt Date: 20210325
  Transmission Date: 20210420
  Serious: No
  Sender: FDA-Public Use
  Company Number: US-SA-2021SA074530

PATIENT
  Age: 64 Year
  Sex: Female

DRUGS (2)
  1. ENOXAPARIN SODIUM. [Suspect]
     Active Substance: ENOXAPARIN SODIUM
     Indication: CONGENITAL ARTERIAL MALFORMATION
     Dosage: UNKNOWN
     Route: 065
  2. ELIQUIS [Suspect]
     Active Substance: APIXABAN
     Dosage: UNKNOWN
     Route: 065

REACTIONS (5)
  - Pain in extremity [Unknown]
  - Epistaxis [Unknown]
  - Drug ineffective [Unknown]
  - Facial pain [Unknown]
  - Chest pain [Unknown]
